FAERS Safety Report 9694262 (Version 2)
Quarter: 2013Q4

REPORT INFORMATION
  Report Type: Spontaneous
  Country: US (occurrence: US)
  Receive Date: 20131118
  Receipt Date: 20131227
  Transmission Date: 20140711
  Serious: No
  Sender: FDA-Public Use
  Company Number: US-PFIZER INC-2013327226

PATIENT
  Age: 88 Year
  Sex: Female

DRUGS (11)
  1. CELEBREX [Suspect]
     Indication: ARTHRITIS
     Dosage: UNK
     Route: 048
     Dates: start: 20131031
  2. LIDODERM [Suspect]
     Indication: ARTHRITIS
     Dosage: APPLIED 1 OR 2 PATCHES TO HER RIGHT HIP FOR 12 HOURS ON AND 12 HOURS OFF
     Route: 061
  3. NOVOLOG [Concomitant]
     Dosage: UNK
  4. CARTIA XT [Concomitant]
     Dosage: UNK
  5. DIOVAN [Concomitant]
     Dosage: UNK
  6. CORDARONE [Concomitant]
     Dosage: UNK
  7. ASPIRIN [Concomitant]
     Dosage: UNK
  8. LIPITOR [Concomitant]
     Dosage: UNK
  9. SYNTHROID [Concomitant]
     Dosage: UNK
  10. VITAMIN D [Concomitant]
     Dosage: UNK
  11. IRON [Concomitant]
     Dosage: UNK

REACTIONS (1)
  - Dyspnoea [Unknown]
